FAERS Safety Report 8953686 (Version 3)
Quarter: 2013Q1

REPORT INFORMATION
  Report Type: Report from Study
  Country: US (occurrence: US)
  Receive Date: 20121206
  Receipt Date: 20130131
  Transmission Date: 20140127
  Serious: Yes (Hospitalization, Other)
  Sender: FDA-Public Use
  Company Number: US-BAYER-2012-119484

PATIENT
  Age: 65 Year
  Sex: Male

DRUGS (8)
  1. STIVARGA [Suspect]
     Indication: COLON CANCER
     Dosage: 40 MG, 4 TABLETS QD, DAILY
     Route: 048
     Dates: start: 20121030, end: 20121126
  2. CLINDAMYCIN PHOSPHATE [Concomitant]
  3. DEXAMETHASONE [Concomitant]
  4. CEPHALEXIN [Concomitant]
  5. PREDNISONE [Concomitant]
  6. PROCHLORPERAZINE MALEATE [Concomitant]
  7. FLUOROURACIL [Concomitant]
  8. IRINOTECAN [Concomitant]

REACTIONS (11)
  - Wound [Not Recovered/Not Resolved]
  - Ocular retrobulbar haemorrhage [Not Recovered/Not Resolved]
  - Fatigue [Not Recovered/Not Resolved]
  - Asthenia [Not Recovered/Not Resolved]
  - Colon cancer metastatic [None]
  - Liver function test abnormal [None]
  - Abdominal pain upper [None]
  - Jaundice [None]
  - Ascites [None]
  - Asthenia [None]
  - Fatigue [None]
